FAERS Safety Report 19917559 (Version 1)
Quarter: 2021Q4

REPORT INFORMATION
  Report Type: Spontaneous
  Country: US (occurrence: US)
  Receive Date: 20211004
  Receipt Date: 20211004
  Transmission Date: 20220303
  Serious: No
  Sender: FDA-Public Use
  Company Number: US-OTSUKA-2021_005332

PATIENT
  Age: 25 Year
  Sex: Male

DRUGS (2)
  1. ABILIFY MAINTENA [Suspect]
     Active Substance: ARIPIPRAZOLE
     Indication: Schizoaffective disorder bipolar type
     Dosage: 400 MG, UNK
     Route: 065
     Dates: start: 20200820
  2. ABILIFY [Suspect]
     Active Substance: ARIPIPRAZOLE
     Indication: Schizoaffective disorder bipolar type
     Dosage: 15 MG, BID FOR 14 DAYS
     Route: 065
     Dates: start: 20200817

REACTIONS (6)
  - Product dose omission issue [Unknown]
  - Inappropriate schedule of product administration [Unknown]
  - Imprisonment [Unknown]
  - Product use in unapproved indication [Unknown]
  - Drug monitoring procedure incorrectly performed [Unknown]
  - Product prescribing error [Unknown]

NARRATIVE: CASE EVENT DATE: 20200817
